FAERS Safety Report 5678300-7 (Version None)
Quarter: 2008Q1

REPORT INFORMATION
  Report Type: 
  Country: None (occurrence: None)
  Receive Date: 20080320
  Receipt Date: 20080311
  Transmission Date: 20080703
  Serious: Yes (Hospitalization)
  Sender: FDA-Public Use
  Company Number: 2008006500

PATIENT
  Sex: Female

DRUGS (1)
  1. DIPHENHYDRAMINE HCL [Suspect]
     Indication: SUICIDE ATTEMPT
     Dosage: 50 PILLS OF 50 MG  EACH (50 MG), ORAL
     Route: 048

REACTIONS (14)
  - BACTERIA URINE [None]
  - CHROMATURIA [None]
  - DRUG TOXICITY [None]
  - DYSARTHRIA [None]
  - ELECTROCARDIOGRAM QT PROLONGED [None]
  - HAEMOGLOBIN URINE [None]
  - INCORRECT DOSE ADMINISTERED [None]
  - LETHARGY [None]
  - NITRITE URINE [None]
  - PROTEIN URINE [None]
  - RENAL FAILURE [None]
  - RHABDOMYOLYSIS [None]
  - SUICIDE ATTEMPT [None]
  - WHITE BLOOD CELL COUNT INCREASED [None]
